FAERS Safety Report 6346581-2 (Version None)
Quarter: 2009Q3

REPORT INFORMATION
  Report Type: 
  Country: None (occurrence: None)
  Receive Date: 20090901
  Receipt Date: 20081230
  Transmission Date: 20100115
  Serious: Yes (Hospitalization)
  Sender: FDA-Public Use
  Company Number: 2008BI035204

PATIENT
  Age: 48 Year
  Sex: Female

DRUGS (4)
  1. TYSABRI [Suspect]
     Indication: MULTIPLE SCLEROSIS
     Dosage: 300 MG;QM;IV
     Route: 042
     Dates: start: 20070627
  2. CON MEDS [Concomitant]
  3. AVONEX [Concomitant]
  4. COPAXONE [Concomitant]

REACTIONS (12)
  - ASTHENIA [None]
  - BALANCE DISORDER [None]
  - BRONCHITIS [None]
  - COUGH [None]
  - DYSSTASIA [None]
  - FATIGUE [None]
  - GENERAL PHYSICAL HEALTH DETERIORATION [None]
  - HEADACHE [None]
  - INSOMNIA [None]
  - LOSS OF CONTROL OF LEGS [None]
  - PNEUMONIA [None]
  - URINARY TRACT INFECTION [None]
